FAERS Safety Report 25566082 (Version 1)
Quarter: 2025Q3

REPORT INFORMATION
  Report Type: Spontaneous
  Country: JP (occurrence: JP)
  Receive Date: 20250716
  Receipt Date: 20250716
  Transmission Date: 20251021
  Serious: Yes (Hospitalization)
  Sender: EISAI
  Company Number: JP-Eisai-202504417_LEN-EC_P_1

PATIENT
  Sex: Female

DRUGS (2)
  1. LENVIMA [Suspect]
     Active Substance: LENVATINIB
     Indication: Endometrial cancer
     Dates: start: 20250403, end: 2025
  2. KEYTRUDA [Suspect]
     Active Substance: PEMBROLIZUMAB
     Indication: Endometrial cancer
     Dates: start: 20250403

REACTIONS (1)
  - Interstitial lung disease [Recovering/Resolving]
